FAERS Safety Report 24023393 (Version 2)
Quarter: 2024Q3

REPORT INFORMATION
  Report Type: Spontaneous
  Country: GB (occurrence: GB)
  Receive Date: 20240627
  Receipt Date: 20240726
  Transmission Date: 20241017
  Serious: Yes (Other)
  Sender: ABBVIE
  Company Number: GB-ABBVIE-5805191

PATIENT
  Sex: Male

DRUGS (1)
  1. OZURDEX [Suspect]
     Active Substance: DEXAMETHASONE
     Indication: Uveitis
     Dosage: TIME INTERVAL: AS NECESSARY
     Route: 050
     Dates: start: 20240613, end: 20240613

REACTIONS (5)
  - Medical device removal [Unknown]
  - Ocular hyperaemia [Unknown]
  - Device physical property issue [Unknown]
  - Device dislocation [Unknown]
  - Ocular implant exposure [Unknown]

NARRATIVE: CASE EVENT DATE: 20240101
